FAERS Safety Report 25505588 (Version 1)
Quarter: 2025Q3

REPORT INFORMATION
  Report Type: Spontaneous
  Country: EU (occurrence: EU)
  Receive Date: 20250702
  Receipt Date: 20250702
  Transmission Date: 20251020
  Serious: Yes (Death, Hospitalization, Other)
  Sender: SANDOZ
  Company Number: EU-AEMPS-328944

PATIENT
  Age: 56 Year
  Sex: Female

DRUGS (4)
  1. BROMAZEPAM [Suspect]
     Active Substance: BROMAZEPAM
     Indication: Suicide attempt
     Route: 048
     Dates: start: 20170313, end: 20170313
  2. CLORAZEPATE DIPOTASSIUM [Suspect]
     Active Substance: CLORAZEPATE DIPOTASSIUM
     Indication: Suicide attempt
     Route: 048
     Dates: start: 20170313, end: 20170313
  3. ACETAMINOPHEN [Suspect]
     Active Substance: ACETAMINOPHEN
     Indication: Suicide attempt
     Route: 048
     Dates: start: 20170313, end: 20170313
  4. VOLTAREN [Suspect]
     Active Substance: DICLOFENAC SODIUM
     Indication: Suicide attempt
     Route: 048
     Dates: start: 20170313, end: 20170313

REACTIONS (9)
  - Acute kidney injury [Fatal]
  - Multiple organ dysfunction syndrome [Fatal]
  - Cardiac arrest [Fatal]
  - Acute hepatic failure [Fatal]
  - Depressed level of consciousness [Unknown]
  - Subdural haematoma [Unknown]
  - Intentional overdose [Unknown]
  - Cerebral atrophy [Unknown]
  - Mydriasis [Unknown]

NARRATIVE: CASE EVENT DATE: 20170314
